FAERS Safety Report 15770700 (Version 3)
Quarter: 2020Q3

REPORT INFORMATION
  Report Type: Spontaneous
  Country: JP (occurrence: JP)
  Receive Date: 20181228
  Receipt Date: 20200723
  Transmission Date: 20201102
  Serious: Yes (Hospitalization, Disabling)
  Sender: FDA-Public Use
  Company Number: JP-MYLANLABS-2018M1094397

PATIENT
  Sex: Male

DRUGS (1)
  1. TAZOPIPE FOR COMBINATION INJECTION 4.5 [PFIZER] [Suspect]
     Active Substance: PIPERACILLIN SODIUM\TAZOBACTAM SODIUM
     Indication: PRODUCT USED FOR UNKNOWN INDICATION
     Dosage: UNK
     Route: 065
     Dates: start: 201607, end: 201608

REACTIONS (4)
  - Mental impairment [Unknown]
  - Drug eruption [Unknown]
  - Eosinophilia [Unknown]
  - Cerebral infarction [Unknown]
